FAERS Safety Report 8600643-5 (Version None)
Quarter: 2012Q3

REPORT INFORMATION
  Report Type: 
  Country: None (occurrence: None)
  Receive Date: 20120803
  Receipt Date: 20120720
  Transmission Date: 20120928
  Serious: Yes (Other)
  Sender: FDA-Public Use
  Company Number: 2012P1052124

PATIENT
  Age: 71 Year
  Sex: Female

DRUGS (11)
  1. DECADRON [Suspect]
     Dosage: 0.3 MG;BIW;IV,0.3 MG;BIW;IV,0.3 MG;BIW;IV
     Route: 042
     Dates: start: 20120719, end: 20120719
  2. DECADRON [Suspect]
     Dosage: 0.3 MG;BIW;IV,0.3 MG;BIW;IV,0.3 MG;BIW;IV
     Route: 042
     Dates: start: 20120607, end: 20120607
  3. DECADRON [Suspect]
     Dosage: 0.3 MG;BIW;IV,0.3 MG;BIW;IV,0.3 MG;BIW;IV
     Route: 042
     Dates: start: 20120621, end: 20120621
  4. CELESTAMINE TAB [Concomitant]
  5. ZANTAC [Suspect]
     Dosage: ,50 MG;BIW;IV,50 MG;BIW;IV
     Route: 042
     Dates: start: 20120719, end: 20120719
  6. ZANTAC [Suspect]
     Dosage: ,50 MG;BIW;IV,50 MG;BIW;IV
     Route: 042
     Dates: start: 20120607, end: 20120607
  7. ZANTAC [Suspect]
     Dosage: ,50 MG;BIW;IV,50 MG;BIW;IV
     Route: 042
     Dates: start: 20120621, end: 20120621
  8. PACLITAXEL [Concomitant]
  9. RAMOSETRON [Concomitant]
  10. CARBOPLATIN [Concomitant]
  11. HYDROCHLORIDE [Concomitant]

REACTIONS (4)
  - SHOCK [None]
  - NAUSEA [None]
  - PALPITATIONS [None]
  - COLD SWEAT [None]
